FAERS Safety Report 4752555-5 (Version None)
Quarter: 2005Q3

REPORT INFORMATION
  Report Type: 
  Country: None (occurrence: None)
  Receive Date: 20050823
  Receipt Date: 20050811
  Transmission Date: 20060218
  Serious: Yes (Other)
  Sender: FDA-Public Use
  Company Number: 8011405

PATIENT
  Age: 26 Year

DRUGS (1)
  1. KEPPRA [Suspect]
     Indication: EPILEPSY
     Dates: start: 20030101

REACTIONS (1)
  - NEUTROPENIA [None]
